FAERS Safety Report 8652892 (Version 4)
Quarter: 2017Q1

REPORT INFORMATION
  Report Type: Spontaneous
  Country: US (occurrence: US)
  Receive Date: 20120706
  Receipt Date: 20170214
  Transmission Date: 20170429
  Serious: Yes (Hospitalization, Other)
  Sender: FDA-Public Use
  Company Number: US-ASTRAZENECA-2011SE48898

PATIENT
  Age: 699 Month
  Sex: Female
  Weight: 72.6 kg

DRUGS (12)
  1. NEURONTINE [Concomitant]
     Indication: FIBROMYALGIA
     Route: 048
  2. COREG [Concomitant]
     Active Substance: CARVEDILOL
     Indication: CARDIAC DISORDER
     Dosage: TWO TIMES A DAY
     Route: 048
     Dates: start: 201510
  3. LIPITOR [Concomitant]
     Active Substance: ATORVASTATIN CALCIUM
     Indication: BLOOD CHOLESTEROL ABNORMAL
     Route: 048
     Dates: start: 201510
  4. SEROQUEL [Suspect]
     Active Substance: QUETIAPINE FUMARATE
     Indication: BIPOLAR DISORDER
     Route: 048
  5. VICODIN [Concomitant]
     Active Substance: ACETAMINOPHEN\HYDROCODONE BITARTRATE
     Indication: PAIN
  6. LISINOPRIL. [Suspect]
     Active Substance: LISINOPRIL
     Indication: BLOOD PRESSURE ABNORMAL
     Route: 048
     Dates: start: 201510
  7. NORVASC [Concomitant]
     Active Substance: AMLODIPINE BESYLATE
     Indication: BLOOD PRESSURE ABNORMAL
  8. CLONIPINE [Concomitant]
     Active Substance: CLONAZEPAM
     Route: 048
  9. LASIX [Concomitant]
     Active Substance: FUROSEMIDE
     Indication: FLUID RETENTION
     Route: 048
     Dates: start: 201510
  10. PLOMITIN [Concomitant]
     Indication: FIBROMYALGIA
  11. SEROQUEL [Suspect]
     Active Substance: QUETIAPINE FUMARATE
     Indication: BIPOLAR DISORDER
     Dosage: DAILY
     Route: 048
     Dates: start: 2010, end: 2010
  12. SEROQUEL [Suspect]
     Active Substance: QUETIAPINE FUMARATE
     Indication: BIPOLAR DISORDER
     Route: 048

REACTIONS (15)
  - Malaise [Unknown]
  - Impaired work ability [Unknown]
  - Intentional product misuse [Unknown]
  - Somnolence [Recovered/Resolved]
  - Myocardial infarction [Unknown]
  - Lethargy [Recovered/Resolved]
  - Insomnia [Unknown]
  - Tremor [Unknown]
  - Hypertension [Unknown]
  - Drug dose omission [Unknown]
  - Loss of consciousness [Unknown]
  - Retinal vascular occlusion [Unknown]
  - Blindness unilateral [Unknown]
  - Disturbance in attention [Unknown]
  - Dyspnoea [Unknown]

NARRATIVE: CASE EVENT DATE: 201510
